FAERS Safety Report 10548294 (Version 1)
Quarter: 2014Q4

REPORT INFORMATION
  Report Type: Spontaneous
  Country: US (occurrence: None)
  Receive Date: 20141027
  Receipt Date: 20141027
  Transmission Date: 20150529
  Serious: Yes (Life-Threatening, Other)
  Sender: FDA-Public Use
  Company Number: None

PATIENT
  Age: 52 Year
  Sex: Female
  Weight: 77.11 kg

DRUGS (1)
  1. METHYLPHENIDATE ER 36 MG [Suspect]
     Active Substance: METHYLPHENIDATE
     Indication: ATTENTION DEFICIT/HYPERACTIVITY DISORDER
     Dosage: 2   QD  ORAL
     Route: 048
     Dates: start: 20140201, end: 20141001

REACTIONS (6)
  - Suicidal ideation [None]
  - Product quality issue [None]
  - Disturbance in attention [None]
  - Depression [None]
  - Memory impairment [None]
  - Product substitution issue [None]

NARRATIVE: CASE EVENT DATE: 20140301
